FAERS Safety Report 4543440-2 (Version None)
Quarter: 2005Q1

REPORT INFORMATION
  Report Type: 
  Country: None (occurrence: None)
  Receive Date: 20050103
  Receipt Date: 20041116
  Transmission Date: 20050727
  Serious: Yes (Life-Threatening, Hospitalization)
  Sender: FDA-Public Use
  Company Number: US-MERCK-0411USA02871

PATIENT
  Age: 76 Year
  Sex: Male

DRUGS (4)
  1. VIOXX [Suspect]
     Route: 048
  2. ECOTRIN [Concomitant]
     Route: 048
  3. PRAVACHOL [Concomitant]
     Route: 048
  4. PRINIVIL [Concomitant]
     Route: 048

REACTIONS (16)
  - ACCIDENT [None]
  - ADVERSE EVENT [None]
  - ARTHRALGIA [None]
  - BENIGN PROSTATIC HYPERPLASIA [None]
  - BLOOD PRESSURE INCREASED [None]
  - CEREBRAL HAEMATOMA [None]
  - FACIAL BONES FRACTURE [None]
  - HAEMORRHAGE INTRACRANIAL [None]
  - HYPERLIPIDAEMIA [None]
  - INJURY [None]
  - MAJOR DEPRESSION [None]
  - OSTEOARTHRITIS [None]
  - POLLAKIURIA [None]
  - POLYTRAUMATISM [None]
  - SKIN LESION [None]
  - UNEVALUABLE EVENT [None]
